FAERS Safety Report 8090887-6 (Version None)
Quarter: 2012Q1

REPORT INFORMATION
  Report Type: 
  Country: None (occurrence: None)
  Receive Date: 20120131
  Receipt Date: 20120127
  Transmission Date: 20120608
  Serious: Yes (Other)
  Sender: FDA-Public Use
  Company Number: US-BAYER-2012-009128

PATIENT
  Age: 33 Year
  Sex: Female

DRUGS (1)
  1. MIRENA [Suspect]
     Indication: CONTRACEPTION
     Dosage: 20 MCG/24HR, CONT
     Route: 015
     Dates: start: 20111209

REACTIONS (7)
  - ABDOMINAL PAIN [None]
  - BREAST TENDERNESS [None]
  - ACNE [None]
  - ABDOMINAL DISTENSION [None]
  - VAGINAL HAEMORRHAGE [None]
  - DISCOMFORT [None]
  - DEPRESSION [None]
